FAERS Safety Report 6267491-5 (Version None)
Quarter: 2009Q3

REPORT INFORMATION
  Report Type: 
  Country: None (occurrence: None)
  Receive Date: 20090714
  Receipt Date: 20090625
  Transmission Date: 20100115
  Serious: Yes (Hospitalization)
  Sender: FDA-Public Use
  Company Number: FR-AMGEN-UK353201

PATIENT
  Sex: Male

DRUGS (3)
  1. AMG 102 [Suspect]
     Indication: NEOPLASM MALIGNANT
     Route: 042
     Dates: start: 20090514
  2. NEULASTA [Suspect]
     Indication: CHEMOTHERAPY
     Dates: start: 20090613
  3. AMG 479 - OBSERVATION/NO DRUG [Suspect]

REACTIONS (1)
  - BACK PAIN [None]
